FAERS Safety Report 5883700-6 (Version None)
Quarter: 2008Q3

REPORT INFORMATION
  Report Type: 
  Country: None (occurrence: None)
  Receive Date: 20080912
  Receipt Date: 20080912
  Transmission Date: 20090109
  Serious: Yes (Other)
  Sender: FDA-Public Use
  Company Number: None

PATIENT
  Age: 49 Year
  Sex: Female
  Weight: 83.9154 kg

DRUGS (1)
  1. CYMBALTA [Suspect]
     Indication: ANXIETY
     Dosage: 30MG ONCE DAILY PO
     Route: 048
     Dates: start: 20080701, end: 20080810

REACTIONS (4)
  - ASTHENIA [None]
  - FEELING HOT [None]
  - NAUSEA [None]
  - VOMITING [None]
